FAERS Safety Report 7241871-3 (Version None)
Quarter: 2011Q1

REPORT INFORMATION
  Report Type: 
  Country: None (occurrence: None)
  Receive Date: 20110124
  Receipt Date: 20110113
  Transmission Date: 20110831
  Serious: Yes (Other)
  Sender: FDA-Public Use
  Company Number: NO-BRISTOL-MYERS SQUIBB COMPANY-15482557

PATIENT
  Sex: Female

DRUGS (2)
  1. ERBITUX [Suspect]
     Indication: COLORECTAL CANCER
     Route: 042
     Dates: start: 20100923, end: 20101227
  2. IRINOTECAN [Concomitant]
     Indication: COLORECTAL CANCER
     Dates: start: 20100923, end: 20101129

REACTIONS (2)
  - HEPATIC VEIN THROMBOSIS [None]
  - METASTASES TO CENTRAL NERVOUS SYSTEM [None]
